FAERS Safety Report 7361785-8 (Version None)
Quarter: 2011Q1

REPORT INFORMATION
  Report Type: 
  Country: None (occurrence: None)
  Receive Date: 20110318
  Receipt Date: 20110314
  Transmission Date: 20110831
  Serious: Yes (Other)
  Sender: FDA-Public Use
  Company Number: JP-NAPPMUNDI-MAG-2010-0001379

PATIENT
  Age: 74 Year

DRUGS (2)
  1. OXYCODONE HCL [Suspect]
     Indication: CANCER PAIN
     Dosage: 2.5 MG, DAILY
     Route: 048
     Dates: start: 20101008, end: 20101018
  2. OXYCODONE HCL [Suspect]
     Indication: CANCER PAIN
     Dosage: UNK
     Route: 065
     Dates: start: 20101008, end: 20101018

REACTIONS (1)
  - DELIRIUM [None]
